FAERS Safety Report 4563955-0 (Version None)
Quarter: 2005Q1

REPORT INFORMATION
  Report Type: 
  Country: None (occurrence: None)
  Receive Date: 20050121
  Receipt Date: 20050110
  Transmission Date: 20050727
  Serious: Yes (Hospitalization)
  Sender: FDA-Public Use
  Company Number: 2005010825

PATIENT
  Age: 60 Year
  Sex: Female

DRUGS (3)
  1. DILTIAZEM [Suspect]
     Indication: BLOOD PRESSURE
     Dosage: 60 MG (60 MG, DAILY), ORAL
     Route: 048
     Dates: start: 20041217, end: 20041221
  2. PHENYTOIN SUSPENSION (PHENYTOIN SUSPENSION) [Suspect]
     Indication: EPILEPSY
     Dosage: 300 MG (100 MG, THREE TIMES DAILY)
  3. WARFARIN SODIUM [Suspect]
     Indication: ILL-DEFINED DISORDER

REACTIONS (7)
  - ANTICONVULSANT DRUG LEVEL ABOVE THERAPEUTIC [None]
  - CONTUSION [None]
  - DIZZINESS [None]
  - DRUG INTERACTION [None]
  - EPILEPSY [None]
  - FALL [None]
  - INTERNATIONAL NORMALISED RATIO INCREASED [None]
